FAERS Safety Report 7869316-0 (Version None)
Quarter: 2011Q4

REPORT INFORMATION
  Report Type: 
  Country: None (occurrence: None)
  Receive Date: 20111028
  Receipt Date: 20111028
  Transmission Date: 20120403
  Serious: No
  Sender: FDA-Public Use
  Company Number: None

PATIENT
  Sex: Female
  Weight: 65 kg

DRUGS (1)
  1. TRIAMTERENE AND HYDROCHLOROTHIAZIDE [Suspect]
     Indication: HYPERTENSION
     Dosage: 37.5/25 DAILY ORAL
     Route: 048
     Dates: start: 20091001, end: 20100201

REACTIONS (3)
  - PRODUCT SUBSTITUTION ISSUE [None]
  - FLUID RETENTION [None]
  - DRUG INEFFECTIVE [None]
